FAERS Safety Report 8045501-2 (Version None)
Quarter: 2012Q1

REPORT INFORMATION
  Report Type: 
  Country: None (occurrence: None)
  Receive Date: 20120113
  Receipt Date: 20120110
  Transmission Date: 20120608
  Serious: Yes (Death, Hospitalization, Other)
  Sender: FDA-Public Use
  Company Number: US-CELGENEUS-163-20785-11123019

PATIENT
  Sex: Female

DRUGS (10)
  1. TERBINAFINE HCL [Concomitant]
     Dosage: 250
     Route: 065
  2. DAPSONE [Concomitant]
     Route: 065
  3. PREDNISONE [Concomitant]
     Dosage: 5 MILLIGRAM
     Route: 065
  4. OMEPRAZOLE [Concomitant]
     Dosage: 20 MILLIGRAM
     Route: 065
  5. VITAMIN D [Concomitant]
     Dosage: 2000 UNITS
     Route: 065
  6. PLAQUENIL [Concomitant]
     Dosage: 200
     Route: 065
  7. THALOMID [Suspect]
     Indication: SYSTEMIC LUPUS ERYTHEMATOSUS
     Dosage: 50 MILLIGRAM
     Route: 048
     Dates: start: 20111001, end: 20111101
  8. CLONAZEPAM [Concomitant]
     Dosage: .5 MILLIGRAM
     Route: 065
  9. ADVAIR DISKUS 100/50 [Concomitant]
     Dosage: 250/50
     Route: 065
  10. VITAMIN B-12 [Concomitant]
     Dosage: 500 MILLIGRAM
     Route: 065

REACTIONS (4)
  - PARAESTHESIA [None]
  - COLITIS [None]
  - TREMOR [None]
  - SEPTIC SHOCK [None]
